FAERS Safety Report 15565770 (Version 3)
Quarter: 2019Q1

REPORT INFORMATION
  Report Type: Spontaneous
  Country: US (occurrence: US)
  Receive Date: 20181030
  Receipt Date: 20190210
  Transmission Date: 20190417
  Serious: Yes (Death, Hospitalization)
  Sender: FDA-Public Use
  Company Number: PHEH2018US046020

PATIENT
  Sex: Female
  Weight: 56.4 kg

DRUGS (2)
  1. MEKINIST [Suspect]
     Active Substance: TRAMETINIB DIMETHYL SULFOXIDE
     Indication: MALIGNANT MELANOMA
     Dosage: 2 MG, QD
     Route: 048
     Dates: start: 20181003, end: 20181004
  2. TAFINLAR [Suspect]
     Active Substance: DABRAFENIB MESYLATE
     Indication: MALIGNANT MELANOMA
     Dosage: 75 MG, BID
     Route: 048
     Dates: start: 20181003, end: 20181004

REACTIONS (14)
  - Hepatic failure [Fatal]
  - Somnolence [Unknown]
  - Metastatic malignant melanoma [Fatal]
  - Metastases to liver [Unknown]
  - Abdominal distension [Unknown]
  - Sensory disturbance [Unknown]
  - Immune-mediated hepatitis [Fatal]
  - Malignant neoplasm progression [Fatal]
  - Ecchymosis [Unknown]
  - Metabolic encephalopathy [Unknown]
  - Ocular icterus [Unknown]
  - Multiple organ dysfunction syndrome [Fatal]
  - Palpitations [Unknown]
  - Jaundice [Unknown]
